FAERS Safety Report 11240635 (Version 5)
Quarter: 2015Q3

REPORT INFORMATION
  Report Type: Spontaneous
  Country: GB (occurrence: GB)
  Receive Date: 20150706
  Receipt Date: 20150911
  Transmission Date: 20151125
  Serious: Yes (Other)
  Sender: FDA-Public Use
  Company Number: GB-ABBVIE-15P-167-1421031-00

PATIENT
  Age: 71 Year
  Sex: Female
  Weight: 56 kg

DRUGS (4)
  1. AMOXICILLIN. [Interacting]
     Active Substance: AMOXICILLIN
     Indication: GASTRITIS EROSIVE
     Route: 048
     Dates: start: 20150408
  2. CLARITHROMYCIN. [Suspect]
     Active Substance: CLARITHROMYCIN
     Indication: GASTRITIS EROSIVE
     Route: 048
     Dates: start: 20150408
  3. LANSOPRAZOLE. [Interacting]
     Active Substance: LANSOPRAZOLE
     Indication: GASTRITIS EROSIVE
     Route: 048
     Dates: start: 20150408
  4. RALOXIFENE HYDROCHLORIDE. [Concomitant]
     Active Substance: RALOXIFENE HYDROCHLORIDE
     Indication: PRODUCT USED FOR UNKNOWN INDICATION

REACTIONS (12)
  - Drug interaction [Recovered/Resolved with Sequelae]
  - Fatigue [Recovered/Resolved]
  - Photosensitivity reaction [Recovered/Resolved with Sequelae]
  - Rash [Recovered/Resolved with Sequelae]
  - Erythema [Recovered/Resolved with Sequelae]
  - Rash macular [Recovered/Resolved with Sequelae]
  - Product label issue [Recovered/Resolved with Sequelae]
  - Musculoskeletal stiffness [Recovered/Resolved]
  - Malaise [Recovered/Resolved]
  - Headache [Recovered/Resolved]
  - Nausea [Recovered/Resolved]
  - Blister [Recovered/Resolved with Sequelae]

NARRATIVE: CASE EVENT DATE: 201504
